FAERS Safety Report 8897050 (Version 1)
Quarter: 2012Q4

REPORT INFORMATION
  Report Type: 
  Country: US (occurrence: US)
  Receive Date: 20121108
  Receipt Date: 20121108
  Transmission Date: 20130627
  Serious: No
  Sender: FDA-Public Use
  Company Number: US-AMGEN-USASP2012025499

PATIENT
  Age: 59 Year
  Sex: Male
  Weight: 93.88 kg

DRUGS (11)
  1. ENBREL [Suspect]
     Indication: PRODUCT USED FOR UNKNOWN INDICATION
     Dosage: 50 mg, qwk
     Route: 058
  2. PLAQUENIL                          /00072603/ [Concomitant]
     Dosage: 200 mg, UNK
  3. PREDNISONE [Concomitant]
     Dosage: 5 mg, UNK
  4. LISINOPRIL HCTZ [Concomitant]
  5. PAROXETINE [Concomitant]
     Dosage: 40 mg, UNK
  6. PRAVASTATIN [Concomitant]
     Dosage: 40 mg, UNK
  7. SALSALATE [Concomitant]
     Dosage: 500 mg, UNK
  8. LEVOTHYROXIN [Concomitant]
     Dosage: 50 mug, UNK
  9. SULFASALAZINE [Concomitant]
     Dosage: 500 mg, UNK
  10. HYDROCODONE/APAP [Concomitant]
  11. FOLIC ACID [Concomitant]

REACTIONS (2)
  - Pain in extremity [Unknown]
  - Injection site pain [Unknown]
